FAERS Safety Report 17566549 (Version 1)
Quarter: 2020Q1

REPORT INFORMATION
  Report Type: Spontaneous
  Country: CA (occurrence: CA)
  Receive Date: 20200320
  Receipt Date: 20200320
  Transmission Date: 20200409
  Serious: Yes (Other)
  Sender: FDA-Public Use
  Company Number: CA-RECORDATI RARE DISEASES-2081824

PATIENT
  Age: 52 Year
  Sex: Female

DRUGS (10)
  1. METFORMIN [Suspect]
     Active Substance: METFORMIN HYDROCHLORIDE
     Route: 048
  2. PEGVISOMANT [Suspect]
     Active Substance: PEGVISOMANT
  3. ROSUVASTATIN CALCIUM. [Concomitant]
     Active Substance: ROSUVASTATIN CALCIUM
  4. CABERGOLINE. [Suspect]
     Active Substance: CABERGOLINE
  5. SOMAVERT [Concomitant]
     Active Substance: PEGVISOMANT
  6. SANDOSTATIN LAR DEPOT [Suspect]
     Active Substance: OCTREOTIDE ACETATE
     Route: 030
  7. VITAMIN B12 [Concomitant]
     Active Substance: CYANOCOBALAMIN
  8. IRON [Concomitant]
     Active Substance: IRON
  9. ASA [Concomitant]
     Active Substance: ASPIRIN
  10. SIGNIFOR [Suspect]
     Active Substance: PASIREOTIDE DIASPARTATE
     Indication: ACROMEGALY
     Route: 030

REACTIONS (5)
  - Body temperature increased [Unknown]
  - Muscle rupture [Unknown]
  - Drug resistance [Unknown]
  - Diabetes mellitus [Unknown]
  - Blood pressure increased [Unknown]
